FAERS Safety Report 11145069 (Version 5)
Quarter: 2015Q4

REPORT INFORMATION
  Report Type: Spontaneous
  Country: US (occurrence: US)
  Receive Date: 20150526
  Receipt Date: 20151103
  Transmission Date: 20160304
  Serious: Yes (Hospitalization)
  Sender: FDA-Public Use
  Company Number: US-BEH-2015051209

PATIENT
  Age: 60 Year
  Sex: Female
  Weight: 71 kg

DRUGS (5)
  1. ZOFRAN [Concomitant]
     Active Substance: ONDANSETRON HYDROCHLORIDE
     Dates: start: 20150519, end: 20150519
  2. ALBURX [Suspect]
     Active Substance: ALBUMIN (HUMAN)
     Indication: PLASMAPHERESIS
     Route: 042
     Dates: start: 20150527, end: 20150527
  3. ZOFRAN [Concomitant]
     Active Substance: ONDANSETRON HYDROCHLORIDE
     Dates: start: 20150527
  4. ALBURX [Suspect]
     Active Substance: ALBUMIN (HUMAN)
     Indication: NEUROPATHY PERIPHERAL
     Dosage: 1 VOLUME EXCHANGE VIA PERMACATH
     Route: 042
     Dates: start: 20150513, end: 20150513
  5. ALBUTEIN [Suspect]
     Active Substance: ALBUMIN (HUMAN)
     Indication: TOXIC NEUROPATHY
     Dates: start: 20150519, end: 20150519

REACTIONS (9)
  - Headache [Unknown]
  - Back pain [Unknown]
  - Vomiting [Recovered/Resolved]
  - Aspartate aminotransferase increased [Recovered/Resolved]
  - Nausea [Unknown]
  - Alanine aminotransferase increased [Recovered/Resolved]
  - Muscle spasms [Recovered/Resolved]
  - Nausea [Recovered/Resolved]
  - Fatigue [Unknown]

NARRATIVE: CASE EVENT DATE: 20150513
